FAERS Safety Report 5211799-9 (Version None)
Quarter: 2007Q1

REPORT INFORMATION
  Report Type: 
  Country: None (occurrence: None)
  Receive Date: 20070116
  Receipt Date: 20070104
  Transmission Date: 20070707
  Serious: Yes (Life-Threatening, Hospitalization, Disabling)
  Sender: FDA-Public Use
  Company Number: 233234

PATIENT
  Age: 57 Year
  Sex: Female
  Weight: 50 kg

DRUGS (8)
  1. MABTHERA(RITUXIMAB) CONC FOR SOLUTION FOR INFUSION [Suspect]
     Indication: B-CELL LYMPHOMA
     Dosage: INTRAVENOUS
     Route: 042
     Dates: start: 20060828, end: 20061010
  2. BLEOMYCIN [Suspect]
     Indication: B-CELL LYMPHOMA
     Dosage: INTRAVENOUS
     Route: 042
     Dates: start: 20060829, end: 20061010
  3. NEUPOGEN [Suspect]
     Indication: DRUG USE FOR UNKNOWN INDICATION
     Dosage: QD, SUBCUTANEOUS
     Route: 058
     Dates: start: 20060903, end: 20060907
  4. METHOTREXATE [Concomitant]
  5. DOXORUBICIN HCL [Concomitant]
  6. CYCLOPHOSPHAMIDE [Concomitant]
  7. VINDESINE (VINDESINE) [Concomitant]
  8. PREDNISONE TAB [Concomitant]

REACTIONS (3)
  - CRYPTOGENIC ORGANISING PNEUMONIA [None]
  - FEBRILE NEUTROPENIA [None]
  - PULMONARY FIBROSIS [None]
